FAERS Safety Report 16239394 (Version 2)
Quarter: 2019Q2

REPORT INFORMATION
  Report Type: Spontaneous
  Country: US (occurrence: US)
  Receive Date: 20190425
  Receipt Date: 20190506
  Transmission Date: 20190711
  Serious: No
  Sender: FDA-Public Use
  Company Number: US-BEH-2019101633

PATIENT
  Age: 30 Year
  Sex: Female

DRUGS (6)
  1. TRIAMCINOLON                       /00031901/ [Concomitant]
     Route: 065
  2. HIZENTRA [Suspect]
     Active Substance: HUMAN IMMUNOGLOBULIN G
     Indication: IMMUNODEFICIENCY
     Dosage: 8G, QW
     Route: 058
     Dates: start: 20170105
  3. SYMBICORT [Concomitant]
     Active Substance: BUDESONIDE\FORMOTEROL FUMARATE DIHYDRATE
     Route: 065
  4. LIDOCAINE/PRILOCAINE [Concomitant]
     Active Substance: LIDOCAINE\PRILOCAINE
     Dosage: UNK %, UNK
     Route: 061
  5. DHA [Concomitant]
     Active Substance: DIETARY SUPPLEMENT
     Dosage: 200 MG, UNK
     Route: 065
  6. OLOPATADINE. [Concomitant]
     Active Substance: OLOPATADINE
     Route: 065

REACTIONS (1)
  - Injection site pain [Not Recovered/Not Resolved]
